FAERS Safety Report 5096198-5 (Version None)
Quarter: 2006Q3

REPORT INFORMATION
  Report Type: 
  Country: None (occurrence: None)
  Receive Date: 20060831
  Receipt Date: 20060824
  Transmission Date: 20061208
  Serious: Yes (Hospitalization)
  Sender: FDA-Public Use
  Company Number: 2006-04660

PATIENT
  Age: 48 Year
  Sex: Male

DRUGS (2)
  1. HYDROMORPHONE HYDROCHLORIDE [Suspect]
     Indication: BACK PAIN
     Dosage: 41MG/DAY INTRATHECAL PUMP, INTRATHECAL
     Route: 037
     Dates: start: 19980101, end: 20060101
  2. BUPIVACAINE [Suspect]
     Indication: BACK PAIN
     Dosage: INTRATHECAL PUMP, INTRATHECAL
     Route: 037
     Dates: start: 19980101, end: 20060101

REACTIONS (1)
  - INJECTION SITE MASS [None]
